FAERS Safety Report 13865065 (Version 1)
Quarter: 2017Q3

REPORT INFORMATION
  Report Type: Spontaneous
  Country: US (occurrence: US)
  Receive Date: 20170814
  Receipt Date: 20170814
  Transmission Date: 20171127
  Serious: Yes (Other)
  Sender: FDA-Public Use
  Company Number: US-BAYER-2017-149283

PATIENT
  Age: 67 Year
  Sex: Male

DRUGS (3)
  1. GADOLINIUM [Concomitant]
     Active Substance: GADOLINIUM
     Indication: OSTEOMYELITIS
     Dosage: UNK
     Route: 042
  2. GADOLINIUM [Concomitant]
     Active Substance: GADOLINIUM
     Indication: NUCLEAR MAGNETIC RESONANCE IMAGING
  3. MAGNEVIST [Suspect]
     Active Substance: GADOPENTETATE DIMEGLUMINE
     Indication: NUCLEAR MAGNETIC RESONANCE IMAGING
     Dosage: UNK UNK, ONCE
     Route: 042

REACTIONS (1)
  - Nephrogenic systemic fibrosis [None]
